FAERS Safety Report 23862747 (Version 2)
Quarter: 2024Q2

REPORT INFORMATION
  Report Type: Spontaneous
  Country: GR (occurrence: GR)
  Receive Date: 20240516
  Receipt Date: 20240624
  Transmission Date: 20240715
  Serious: No
  Sender: FDA-Public Use
  Company Number: GR-PFIZER INC-PV202400061862

PATIENT
  Age: 13 Year
  Sex: Male

DRUGS (2)
  1. GENOTROPIN [Suspect]
     Active Substance: SOMATROPIN
     Indication: Body height decreased
     Dosage: 0.6 MG, DAILY (FOR 3 DAYS)
     Route: 058
     Dates: start: 20230329
  2. GENOTROPIN [Suspect]
     Active Substance: SOMATROPIN
     Dosage: 0.8 MG, DAILY (FOR 4 DAYS)
     Route: 058

REACTIONS (2)
  - Device issue [Unknown]
  - Drug dose omission by device [Unknown]
